FAERS Safety Report 16687630 (Version 1)
Quarter: 2019Q4

REPORT INFORMATION
  Report Type: Spontaneous
  Country: US (occurrence: US)
  Receive Date: 20190808
  Receipt Date: 20190808
  Transmission Date: 20200122
  Serious: Yes (Other)
  Sender: FDA-Public Use
  Company Number: None

PATIENT
  Age: 33 Year
  Sex: Male
  Weight: 74.2 kg

DRUGS (13)
  1. AMOXICILLIN. [Concomitant]
     Active Substance: AMOXICILLIN
  2. ENTECAVIR. [Concomitant]
     Active Substance: ENTECAVIR
  3. GLYXOLAX [Concomitant]
  4. SENNA [Concomitant]
     Active Substance: SENNA LEAF\SENNOSIDES\SENNOSIDES A AND B
  5. CALCIUM GLUCONATE. [Suspect]
     Active Substance: CALCIUM GLUCONATE
  6. SODIUM CITRATE SOLUTION [Suspect]
     Active Substance: SODIUM CITRATE
     Indication: BLOOD STEM CELL HARVEST
     Dosage: ?          OTHER FREQUENCY:ONCE;OTHER ROUTE:EXTRACORPOREAL?
  7. ZARXIO [Concomitant]
     Active Substance: FILGRASTIM-SNDZ
  8. DOCUSATE [Concomitant]
     Active Substance: DOCUSATE
  9. ACYCLOVIR. [Concomitant]
     Active Substance: ACYCLOVIR
  10. LIDOCAINE/DIPHENHYDRAMINE/MAALOX MOUTHWASH [Concomitant]
  11. PANTOPRAZOLE [Concomitant]
     Active Substance: PANTOPRAZOLE
  12. ONDANSETRON [Concomitant]
     Active Substance: ONDANSETRON
  13. CHOLECALCIFEROL [Concomitant]
     Active Substance: CHOLECALCIFEROL

REACTIONS (3)
  - Tetany [None]
  - Hypoaesthesia [None]
  - Paraesthesia [None]

NARRATIVE: CASE EVENT DATE: 20190717
